FAERS Safety Report 7873930-6 (Version None)
Quarter: 2011Q4

REPORT INFORMATION
  Report Type: 
  Country: None (occurrence: None)
  Receive Date: 20111030
  Receipt Date: 20110512
  Transmission Date: 20120403
  Serious: No
  Sender: FDA-Public Use
  Company Number: US-AMGEN-USASP2011024629

PATIENT
  Age: 58 Year
  Sex: Male
  Weight: 40.816 kg

DRUGS (6)
  1. ALLOPURINOL [Concomitant]
     Dosage: 300 MG, UNK
  2. VITAMIN D [Concomitant]
     Dosage: UNK
  3. ENBREL [Suspect]
     Indication: PRODUCT USED FOR UNKNOWN INDICATION
     Dosage: 50 MG, QWK
     Route: 058
  4. FOSAMAX [Concomitant]
     Dosage: 5 MG, UNK
  5. COLCHICINE [Concomitant]
     Dosage: 0.6 MG, UNK
  6. NAPROXEN [Concomitant]
     Dosage: 500 MG, UNK

REACTIONS (1)
  - URINARY TRACT INFECTION [None]
